FAERS Safety Report 6354254-5 (Version None)
Quarter: 2009Q3

REPORT INFORMATION
  Report Type: 
  Country: None (occurrence: None)
  Receive Date: 20090914
  Receipt Date: 20090813
  Transmission Date: 20100115
  Serious: No
  Sender: FDA-Public Use
  Company Number: US-BAYER-200929770NA

PATIENT
  Sex: Male

DRUGS (1)
  1. AVELOX [Suspect]
     Indication: EAR INFECTION
     Dates: start: 20090810

REACTIONS (2)
  - HEADACHE [None]
  - PAIN IN EXTREMITY [None]
